FAERS Safety Report 7931491-7 (Version None)
Quarter: 2011Q4

REPORT INFORMATION
  Report Type: 
  Country: None (occurrence: None)
  Receive Date: 20111121
  Receipt Date: 20111121
  Transmission Date: 20120403
  Serious: Yes (Other)
  Sender: FDA-Public Use
  Company Number: None

PATIENT
  Sex: Female
  Weight: 73.481 kg

DRUGS (1)
  1. PREDNISONE TAB [Suspect]
     Indication: BASEDOW'S DISEASE
     Dosage: 3
     Route: 048
     Dates: start: 20111105, end: 20111114

REACTIONS (8)
  - DIZZINESS [None]
  - FREQUENT BOWEL MOVEMENTS [None]
  - DYSPNOEA [None]
  - DYSURIA [None]
  - HEART RATE IRREGULAR [None]
  - ANXIETY [None]
  - BACK PAIN [None]
  - ASTHENIA [None]
